FAERS Safety Report 9384373 (Version 2)
Quarter: 2014Q4

REPORT INFORMATION
  Report Type: Spontaneous
  Country: MX (occurrence: MX)
  Receive Date: 20130705
  Receipt Date: 20141124
  Transmission Date: 20150529
  Serious: Yes (Other)
  Sender: FDA-Public Use
  Company Number: PHHY2013MX070921

PATIENT
  Sex: Female

DRUGS (1)
  1. EXFORGE HCT [Suspect]
     Active Substance: AMLODIPINE BESYLATE\HYDROCHLOROTHIAZIDE\VALSARTAN
     Indication: PRODUCT USED FOR UNKNOWN INDICATION
     Dosage: 1 DF  (VALS 160MG, AMLO 5MG, HCTZ 12.5MG) DAILY
     Route: 048
     Dates: start: 201304

REACTIONS (2)
  - Angina pectoris [Not Recovered/Not Resolved]
  - Blood pressure increased [Unknown]
